FAERS Safety Report 6738881-9 (Version None)
Quarter: 2010Q2

REPORT INFORMATION
  Report Type: 
  Country: None (occurrence: None)
  Receive Date: 20100520
  Receipt Date: 20100506
  Transmission Date: 20101027
  Serious: Yes (Other)
  Sender: FDA-Public Use
  Company Number: DSJ-2010-07361

PATIENT
  Age: 58 Year
  Sex: Female

DRUGS (7)
  1. BENICAR HCT [Suspect]
     Indication: HYPERTENSION
     Dosage: 20/12.5 MG (1 IN 1 D), PER ORAL
     Route: 048
     Dates: start: 20060728, end: 20090501
  2. CLOPIDOGREL [Concomitant]
  3. ROSUVASTATIN  (ROSUVASTATIN) [Concomitant]
  4. METOPROLOL SUCCINATE [Concomitant]
  5. ORPHENADRINE/METAMIZOL/CAFFEINE [Concomitant]
  6. ACETYLSALICYCLIC ACID (ACETYLSALICYLIC ACID) (ACETYLSALICYLIC ACID) [Concomitant]
  7. OMEPRAZOLE [Concomitant]

REACTIONS (4)
  - ANGINA PECTORIS [None]
  - MUSCULOSKELETAL PAIN [None]
  - NECK PAIN [None]
  - PAIN IN JAW [None]
